FAERS Safety Report 7279054-3 (Version None)
Quarter: 2011Q1

REPORT INFORMATION
  Report Type: 
  Country: None (occurrence: None)
  Receive Date: 20110207
  Receipt Date: 20110131
  Transmission Date: 20110831
  Serious: Yes (Hospitalization)
  Sender: FDA-Public Use
  Company Number: US-US-EMD SERONO, INC.-7039319

PATIENT
  Sex: Female

DRUGS (3)
  1. ADVAIR [Concomitant]
     Indication: ASTHMA
  2. UNSPECIFIED INHALER [Concomitant]
     Indication: ASTHMA
  3. REBIF [Suspect]
     Indication: MULTIPLE SCLEROSIS
     Route: 058
     Dates: start: 20091103

REACTIONS (3)
  - ASTHMA [None]
  - BRONCHITIS [None]
  - MULTIPLE SCLEROSIS [None]
